FAERS Safety Report 11966911 (Version 1)
Quarter: 2016Q1

REPORT INFORMATION
  Report Type: Spontaneous
  Country: US (occurrence: US)
  Receive Date: 20160127
  Receipt Date: 20160127
  Transmission Date: 20160526
  Serious: No
  Sender: FDA-Public Use
  Company Number: US-UNITED THERAPEUTICS-UNT-2015-009797

PATIENT
  Sex: Female
  Weight: 82.99 kg

DRUGS (13)
  1. ORENITRAM [Suspect]
     Active Substance: TREPROSTINIL
     Dosage: 6.125 MG, TID
     Route: 048
  2. LETAIRIS [Suspect]
     Active Substance: AMBRISENTAN
     Indication: PULMONARY HYPERTENSION
     Dosage: 10 MG, QD
     Route: 065
     Dates: start: 20091202
  3. LETAIRIS [Suspect]
     Active Substance: AMBRISENTAN
     Dosage: UNK
  4. ORENITRAM [Suspect]
     Active Substance: TREPROSTINIL
     Dosage: 6.125 MG, TID
     Route: 048
  5. ORENITRAM [Suspect]
     Active Substance: TREPROSTINIL
     Dosage: 6.25 MG, TID
     Route: 048
  6. ORENITRAM [Suspect]
     Active Substance: TREPROSTINIL
     Dosage: UNK
     Route: 048
  7. ORENITRAM [Suspect]
     Active Substance: TREPROSTINIL
     Dosage: UNK
     Route: 048
  8. COUMADIN [Concomitant]
     Active Substance: WARFARIN SODIUM
     Indication: PRODUCT USED FOR UNKNOWN INDICATION
  9. ORENITRAM [Suspect]
     Active Substance: TREPROSTINIL
     Indication: PULMONARY HYPERTENSION
     Dosage: 5.625 MG, TID
     Route: 048
     Dates: start: 20150114
  10. ORENITRAM [Suspect]
     Active Substance: TREPROSTINIL
     Dosage: UNK
     Route: 048
  11. ORENITRAM [Suspect]
     Active Substance: TREPROSTINIL
     Dosage: UNK
     Route: 048
  12. ORENITRAM [Suspect]
     Active Substance: TREPROSTINIL
     Dosage: UNK
     Route: 048
  13. ADCIRCA [Concomitant]
     Active Substance: TADALAFIL
     Indication: PRODUCT USED FOR UNKNOWN INDICATION

REACTIONS (17)
  - Animal scratch [Unknown]
  - Weight increased [Unknown]
  - Infection [Unknown]
  - Musculoskeletal discomfort [Unknown]
  - Nausea [Unknown]
  - Heart rate increased [Unknown]
  - Pain in extremity [Unknown]
  - Weight decreased [Recovering/Resolving]
  - Pain [Not Recovered/Not Resolved]
  - Headache [Unknown]
  - Drug dose omission [Unknown]
  - Oedema peripheral [Unknown]
  - Treatment noncompliance [Unknown]
  - Incorrect dose administered [Unknown]
  - Localised infection [Unknown]
  - Bloody discharge [Unknown]
  - Diarrhoea [Unknown]

NARRATIVE: CASE EVENT DATE: 2015
